FAERS Safety Report 9521120 (Version 1)
Quarter: 2013Q3

REPORT INFORMATION
  Report Type: Spontaneous
  Country: US (occurrence: US)
  Receive Date: 20130913
  Receipt Date: 20130913
  Transmission Date: 20140515
  Serious: No
  Sender: FDA-Public Use
  Company Number: US-BIOGENIDEC-2013BI086130

PATIENT
  Age: 50 Year
  Sex: Male

DRUGS (3)
  1. TYSABRI [Suspect]
     Indication: MULTIPLE SCLEROSIS
     Route: 042
     Dates: start: 20130829
  2. AMPYRA [Concomitant]
     Indication: MULTIPLE SCLEROSIS
     Route: 048
     Dates: start: 201307
  3. FLOMAX [Concomitant]
     Indication: URINE FLOW DECREASED

REACTIONS (10)
  - Decreased appetite [Unknown]
  - Night sweats [Recovered/Resolved]
  - Pain in extremity [Unknown]
  - Urine flow decreased [Not Recovered/Not Resolved]
  - Paraesthesia [Unknown]
  - Hypoaesthesia [Unknown]
  - Tremor [Unknown]
  - Dyspepsia [Unknown]
  - Rash pruritic [Not Recovered/Not Resolved]
  - Headache [Unknown]
